FAERS Safety Report 21111424 (Version 1)
Quarter: 2022Q3

REPORT INFORMATION
  Report Type: Spontaneous
  Country: US (occurrence: None)
  Receive Date: 20220721
  Receipt Date: 20220721
  Transmission Date: 20221026
  Serious: No
  Sender: FDA-Public Use
  Company Number: 2022A257408

PATIENT
  Age: 58 Year
  Sex: Male
  Weight: 82.6 kg

DRUGS (3)
  1. FARXIGA [Suspect]
     Active Substance: DAPAGLIFLOZIN PROPANEDIOL
     Indication: Type 2 diabetes mellitus
     Route: 048
     Dates: start: 202204
  2. LISINOPRIL [Concomitant]
     Active Substance: LISINOPRIL
     Route: 065
  3. ASPIRIN [Concomitant]
     Active Substance: ASPIRIN
     Route: 065

REACTIONS (6)
  - Weight decreased [Not Recovered/Not Resolved]
  - Hypoacusis [Unknown]
  - Pollakiuria [Not Recovered/Not Resolved]
  - Erection increased [Recovered/Resolved]
  - Blood pressure diastolic decreased [Unknown]
  - Incontinence [Unknown]

NARRATIVE: CASE EVENT DATE: 20220101
